FAERS Safety Report 9045240 (Version 3)
Quarter: 2013Q1

REPORT INFORMATION
  Report Type: Spontaneous
  Country: NO (occurrence: NO)
  Receive Date: 20130131
  Receipt Date: 20130304
  Transmission Date: 20140127
  Serious: Yes (Other)
  Sender: FDA-Public Use
  Company Number: NO-009507513-1301NOR013747

PATIENT
  Age: 56 None
  Sex: Female

DRUGS (3)
  1. ROCURONIUM BROMIDE [Suspect]
     Indication: INDUCTION OF ANAESTHESIA
     Route: 040
     Dates: start: 20120709, end: 20120709
  2. FENTANYL [Suspect]
     Indication: INDUCTION OF ANAESTHESIA
     Route: 040
     Dates: start: 20120709, end: 20120709
  3. PROPOFOL [Suspect]
     Indication: INDUCTION OF ANAESTHESIA
     Dosage: 120 MG + 80 MG
     Route: 040
     Dates: start: 20120709, end: 20120709

REACTIONS (2)
  - Urticaria [Recovered/Resolved]
  - Tachycardia [Recovered/Resolved]
